FAERS Safety Report 23421304 (Version 2)
Quarter: 2024Q1

REPORT INFORMATION
  Report Type: Spontaneous
  Country: AT (occurrence: AT)
  Receive Date: 20240119
  Receipt Date: 20240209
  Transmission Date: 20240410
  Serious: Yes (Other)
  Sender: FDA-Public Use
  Company Number: None

PATIENT
  Age: 77 Year
  Sex: Female

DRUGS (1)
  1. EYLEA [Suspect]
     Active Substance: AFLIBERCEPT
     Indication: Product used for unknown indication
     Dosage: LEFT EYE, 40 MG/ML, SOLUTION FOR INJECTION
     Route: 031
     Dates: start: 20231019

REACTIONS (3)
  - Visual impairment [Recovered/Resolved]
  - Suspected product quality issue [Unknown]
  - Vitreous floaters [Recovered/Resolved]

NARRATIVE: CASE EVENT DATE: 20231023
